FAERS Safety Report 9331029 (Version 1)
Quarter: 2013Q2

REPORT INFORMATION
  Report Type: Spontaneous
  Country: IT (occurrence: IT)
  Receive Date: 20130605
  Receipt Date: 20130605
  Transmission Date: 20140414
  Serious: Yes (Hospitalization)
  Sender: FDA-Public Use
  Company Number: IT-JNJFOC-20130519710

PATIENT
  Age: 66 Year
  Sex: Male

DRUGS (4)
  1. SERENASE [Suspect]
     Indication: PRODUCT USED FOR UNKNOWN INDICATION
     Route: 048
     Dates: start: 20120606, end: 20120928
  2. LENDORMIN [Suspect]
     Indication: DEPRESSION
     Route: 048
     Dates: start: 20120606, end: 20120928
  3. ENTUMIN [Suspect]
     Indication: PSYCHOTIC DISORDER
     Route: 048
     Dates: start: 20120606, end: 20120928
  4. DISIPAL [Suspect]
     Indication: PSYCHOTIC DISORDER
     Route: 048
     Dates: start: 20120606, end: 20120928

REACTIONS (1)
  - Rhabdomyolysis [Unknown]
